FAERS Safety Report 4576531-0 (Version None)
Quarter: 2005Q1

REPORT INFORMATION
  Report Type: 
  Country: None (occurrence: None)
  Receive Date: 20050119
  Receipt Date: 20040501
  Transmission Date: 20050727
  Serious: Yes (Hospitalization)
  Sender: FDA-Public Use
  Company Number: A03200401408

PATIENT
  Age: 65 Year
  Sex: Male
  Weight: 81.6475 kg

DRUGS (3)
  1. PLAVIX [Suspect]
     Indication: MYOCARDIAL INFARCTION
     Dosage: 75 MG QD - ORAL
     Route: 048
     Dates: start: 20020101, end: 20040425
  2. PLAVIX [Suspect]
     Indication: PROPHYLAXIS
     Dosage: 75 MG QD - ORAL
     Route: 048
     Dates: start: 20020101, end: 20040425
  3. ACETYLSALICYLIC ACID SRT [Suspect]
     Indication: CHEST PAIN
     Dosage: 325 MG PRN - ORAL
     Route: 048

REACTIONS (1)
  - MYOCARDIAL INFARCTION [None]
